FAERS Safety Report 6562954-7 (Version None)
Quarter: 2010Q1

REPORT INFORMATION
  Report Type: 
  Country: None (occurrence: None)
  Receive Date: 20100130
  Receipt Date: 20091201
  Transmission Date: 20100710
  Serious: Yes (Other)
  Sender: FDA-Public Use
  Company Number: US-ABBOTT-09P-163-0611511-00

PATIENT
  Sex: Female
  Weight: 66.738 kg

DRUGS (9)
  1. HUMIRA [Suspect]
     Indication: RHEUMATOID ARTHRITIS
     Dates: start: 20040201, end: 20090201
  2. TRIAMTERENE AND HYDROCHLOROTHIAZIDE [Concomitant]
     Indication: HYPERTENSION
     Dosage: 35.7MG/25MG
  3. VERAPAMIL ER [Concomitant]
     Indication: HYPERTENSION
  4. FOLIC ACID [Concomitant]
     Indication: DRUG USE FOR UNKNOWN INDICATION
  5. DICLOFENAC SODIUM [Concomitant]
     Indication: RHEUMATOID ARTHRITIS
  6. METHOTREXATE [Concomitant]
     Indication: RHEUMATOID ARTHRITIS
     Dosage: 6 TABLETS WEEKLY
  7. OSCAL 500+D [Concomitant]
     Indication: BONE DENSITY DECREASED
  8. EYE CAPS WITH LUTEIN [Concomitant]
     Indication: MACULAR DEGENERATION
  9. CENTRUM SILVER [Concomitant]
     Indication: MACULAR DEGENERATION

REACTIONS (1)
  - BREAST CANCER [None]
